FAERS Safety Report 11552310 (Version 3)
Quarter: 2016Q3

REPORT INFORMATION
  Report Type: Report from Study
  Country: US (occurrence: US)
  Receive Date: 20150925
  Receipt Date: 20160921
  Transmission Date: 20161109
  Serious: Yes (Hospitalization, Other)
  Sender: FDA-Public Use
  Company Number: US-AMGEN-USASL2015097450

PATIENT
  Age: 69 Year
  Sex: Female

DRUGS (1)
  1. ENBREL [Suspect]
     Active Substance: ETANERCEPT
     Indication: RHEUMATOID ARTHRITIS
     Dosage: 50 MG, WEEKLY
     Route: 065

REACTIONS (10)
  - Wound infection [Not Recovered/Not Resolved]
  - Spinal pain [Unknown]
  - Dysstasia [Unknown]
  - Infection [Unknown]
  - Back pain [Unknown]
  - Spinal operation [Not Recovered/Not Resolved]
  - Sciatica [Unknown]
  - Gait disturbance [Unknown]
  - Spinal disorder [Unknown]
  - Impaired healing [Unknown]

NARRATIVE: CASE EVENT DATE: 20150930
